FAERS Safety Report 6031577-0 (Version None)
Quarter: 2009Q1

REPORT INFORMATION
  Report Type: 
  Country: None (occurrence: None)
  Receive Date: 20090108
  Receipt Date: 20081225
  Transmission Date: 20090719
  Serious: Yes (Other)
  Sender: FDA-Public Use
  Company Number: IE-GENENTECH-274633

PATIENT
  Sex: Female

DRUGS (14)
  1. XOLAIR [Suspect]
     Indication: ASTHMA
     Dosage: 225 MG, Q2W
     Dates: start: 20070608
  2. XOLAIR [Suspect]
     Dosage: UNK
     Dates: start: 20070622
  3. XOLAIR [Suspect]
     Dosage: UNK
     Dates: start: 20080811
  4. XOLAIR [Suspect]
     Dosage: UNK
     Dates: start: 20081202
  5. THEOPHYLLINE [Concomitant]
     Indication: DRUG USE FOR UNKNOWN INDICATION
     Dosage: 200 MG, UNK
  6. SERETIDE [Concomitant]
     Indication: DRUG USE FOR UNKNOWN INDICATION
  7. COMBIVENT [Concomitant]
     Indication: DRUG USE FOR UNKNOWN INDICATION
  8. IDEOS [Concomitant]
     Indication: DRUG USE FOR UNKNOWN INDICATION
  9. DELTACORTRIL [Concomitant]
     Indication: DRUG USE FOR UNKNOWN INDICATION
  10. PREDNISOLONE [Concomitant]
     Indication: DRUG USE FOR UNKNOWN INDICATION
  11. OMEPRAZOLE [Concomitant]
     Indication: DRUG USE FOR UNKNOWN INDICATION
  12. SYMBICORT [Concomitant]
     Indication: DRUG USE FOR UNKNOWN INDICATION
  13. SINGULAIR [Concomitant]
     Indication: DRUG USE FOR UNKNOWN INDICATION
  14. ANTIHISTAMINES (UNK INGREDIENTS) [Concomitant]
     Indication: DRUG USE FOR UNKNOWN INDICATION

REACTIONS (5)
  - DRUG INEFFECTIVE [None]
  - OCULAR HYPERAEMIA [None]
  - ORAL PRURITUS [None]
  - THROAT IRRITATION [None]
  - WHEEZING [None]
